FAERS Safety Report 18970107 (Version 1)
Quarter: 2021Q1

REPORT INFORMATION
  Report Type: Spontaneous
  Country: US (occurrence: US)
  Receive Date: 20210304
  Receipt Date: 20210304
  Transmission Date: 20210420
  Serious: No
  Sender: FDA-Public Use
  Company Number: US-MYLANLABS-2021M1011579

PATIENT
  Age: 72 Year
  Sex: Male
  Weight: 66 kg

DRUGS (1)
  1. WIXELA INHUB [Suspect]
     Active Substance: FLUTICASONE PROPIONATE\SALMETEROL XINAFOATE
     Indication: DYSPNOEA
     Dosage: 250/50 MICROGRAM, BID
     Route: 055

REACTIONS (2)
  - Product dose omission issue [Not Recovered/Not Resolved]
  - Device issue [Not Recovered/Not Resolved]
